FAERS Safety Report 9114758 (Version 1)
Quarter: 2013Q1

REPORT INFORMATION
  Report Type: Spontaneous
  Country: US (occurrence: US)
  Receive Date: 20130208
  Receipt Date: 20130208
  Transmission Date: 20140127
  Serious: Yes (Death)
  Sender: FDA-Public Use
  Company Number: CHPA2013US002299

PATIENT
  Age: 45 Year
  Sex: Male

DRUGS (8)
  1. DIPHENHYDRAMINE [Suspect]
     Dosage: UNK, UNK
  2. ACETAMINOPHEN (PARACETAMOL) [Suspect]
     Dosage: UNK,UNK
  3. CARBON MONOXIDE [Suspect]
     Dosage: UNK,UNK
  4. MECLIZINE [Suspect]
     Dosage: UNK,UNK
  5. ALPRAZOLAM [Suspect]
     Dosage: UNK,UNK
  6. VENLAFAXINE [Suspect]
     Dosage: UNK,UNK
  7. TOPIRAMATE [Suspect]
     Dosage: UNK,UNK
  8. BUPROPION [Suspect]
     Dosage: UNK,UNK

REACTIONS (1)
  - Completed suicide [Fatal]
